FAERS Safety Report 7346936-3 (Version None)
Quarter: 2011Q1

REPORT INFORMATION
  Report Type: 
  Country: None (occurrence: None)
  Receive Date: 20110311
  Receipt Date: 20110308
  Transmission Date: 20110831
  Serious: Yes (Death, Hospitalization, Other)
  Sender: FDA-Public Use
  Company Number: US-GENZYME-CAMP-1001091

PATIENT
  Age: 28 Year
  Sex: Female
  Weight: 113 kg

DRUGS (28)
  1. ELSPAR [Suspect]
     Dosage: 500 IU/KG, DAY 2 OF EACH CYCLE
     Route: 030
     Dates: start: 20100926, end: 20100926
  2. VINCRISTINE [Suspect]
     Dosage: 2 MG, DAY 2 OF EACH CYCLE
     Route: 042
     Dates: start: 20101006, end: 20101006
  3. VINCRISTINE [Suspect]
     Indication: ACUTE LYMPHOCYTIC LEUKAEMIA
     Dosage: 2 MG, DAY 2 OF EACH CYCLE
     Route: 042
     Dates: start: 20100916, end: 20100916
  4. LORAZEPAM [Concomitant]
     Indication: PRODUCT USED FOR UNKNOWN INDICATION
     Dosage: 0.5 MG, Q6H PRN
     Route: 048
     Dates: end: 20100925
  5. METOCLOPRAMIDE HCL [Concomitant]
     Dosage: 10 MG, Q4H PRN
     Route: 042
     Dates: end: 20101024
  6. SWIZZLE SOLN (CUP) [Concomitant]
     Indication: PRODUCT USED FOR UNKNOWN INDICATION
     Dosage: 5 ML, Q1H PRN
     Route: 065
     Dates: end: 20101017
  7. CAMPATH [Suspect]
     Indication: ACUTE LYMPHOCYTIC LEUKAEMIA
     Dosage: 10 MG, DAYS 1, 4, AND 7 OF EACH 10 DAY CYCLE
     Route: 058
     Dates: start: 20100915, end: 20100921
  8. DEXAMETHASONE [Suspect]
     Dosage: 6 MG/M2, DAYS 1 THRU 10 OF EACH CYCLE
     Route: 048
     Dates: start: 20100925, end: 20101004
  9. ELSPAR [Suspect]
     Indication: ACUTE LYMPHOCYTIC LEUKAEMIA
     Dosage: 500 IU/KG, DAY 2 OF EACH CYCLE
     Route: 030
     Dates: start: 20100916, end: 20100916
  10. LIDOCAINE W [Concomitant]
     Indication: PRODUCT USED FOR UNKNOWN INDICATION
     Dosage: 1 APPLICATION PRN
     Route: 061
     Dates: end: 20101011
  11. METOCLOPRAMIDE HCL [Concomitant]
     Indication: PRODUCT USED FOR UNKNOWN INDICATION
     Dosage: 10 MG, Q4H PRN
     Route: 048
     Dates: end: 20101011
  12. METHOTREXATE [Suspect]
     Dosage: 100 MG/M2, DAY 1 OF EACH CYCLE
     Route: 042
     Dates: start: 20100925, end: 20100925
  13. VINCRISTINE [Suspect]
     Dosage: 2 MG, DAY 2 OF EACH CYCLE
     Route: 042
     Dates: start: 20100926, end: 20100926
  14. ACETAMINOPHEN [Concomitant]
     Indication: PRODUCT USED FOR UNKNOWN INDICATION
     Dosage: UNK
     Route: 065
     Dates: end: 20101102
  15. DIPHENHYDRAMINE [Concomitant]
     Dosage: 25 MG, PRN
     Route: 042
     Dates: end: 20101101
  16. METHOTREXATE [Suspect]
     Indication: ACUTE LYMPHOCYTIC LEUKAEMIA
     Dosage: 100 MG/M2, DAY 1 OF EACH CYCLE
     Route: 042
     Dates: start: 20100915, end: 20100915
  17. CYCLOBENZAPRINE [Concomitant]
     Indication: PRODUCT USED FOR UNKNOWN INDICATION
     Dosage: 10 MG, QHS
     Route: 048
     Dates: end: 20101102
  18. ZOLPIDEM [Concomitant]
     Indication: PRODUCT USED FOR UNKNOWN INDICATION
     Dosage: 5 MG, HS PRN
     Route: 048
     Dates: end: 20101028
  19. DEXAMETHASONE [Suspect]
     Indication: ACUTE LYMPHOCYTIC LEUKAEMIA
     Dosage: 6 MG/M2, DAYS 1 THRU 10 OF EACH CYCLE
     Route: 048
     Dates: start: 20100915, end: 20100924
  20. ALUMINIUM + MAGNESIUM HYDROXIDE [Concomitant]
     Indication: PRODUCT USED FOR UNKNOWN INDICATION
     Dosage: 30 ML, Q4H PRN
     Route: 050
     Dates: end: 20101004
  21. ONDANSETRON [Concomitant]
     Indication: PRODUCT USED FOR UNKNOWN INDICATION
     Dosage: 4 MG, Q6H PRN
     Route: 042
     Dates: end: 20101101
  22. ELSPAR [Suspect]
     Dosage: 500 IU/KG, DAY 2 OF EACH CYCLE
     Route: 030
     Dates: start: 20101006, end: 20101006
  23. METHOTREXATE [Suspect]
     Dosage: 100 MG/M2, DAY 1 OF EACH CYCLE
     Route: 042
     Dates: start: 20101005, end: 20101005
  24. DIPHENHYDRAMINE [Concomitant]
     Indication: PRODUCT USED FOR UNKNOWN INDICATION
     Dosage: 25 MG, PRN
     Route: 048
     Dates: end: 20101031
  25. CAMPATH [Suspect]
     Dosage: 10 MG, DAYS 1, 4, AND 7 OF EACH CYCLE
     Route: 058
     Dates: start: 20100925, end: 20101001
  26. DEXAMETHASONE [Suspect]
     Dosage: 6 MG/M2, DAYS 1 THRU 10 OF EACH CYCLE
     Route: 048
     Dates: start: 20101005, end: 20101014
  27. ULCEREASE [Concomitant]
     Indication: PRODUCT USED FOR UNKNOWN INDICATION
     Dosage: Q2H PRN
     Route: 048
     Dates: end: 20100930
  28. MILK OF MAGNESIA TAB [Concomitant]
     Indication: PRODUCT USED FOR UNKNOWN INDICATION
     Dosage: 10 MG, QD PRN
     Route: 048
     Dates: end: 20101017

REACTIONS (3)
  - DEATH [None]
  - ACUTE LYMPHOCYTIC LEUKAEMIA RECURRENT [None]
  - OPPORTUNISTIC INFECTION [None]
